FAERS Safety Report 6460924-0 (Version None)
Quarter: 2009Q4

REPORT INFORMATION
  Report Type: 
  Country: None (occurrence: None)
  Receive Date: 20091130
  Receipt Date: 20091116
  Transmission Date: 20100525
  Serious: Yes (Other)
  Sender: FDA-Public Use
  Company Number: GB-CELGENEUS-167-20484-09111584

PATIENT
  Sex: Male
  Weight: 0.74 kg

DRUGS (12)
  1. INNOHEP [Suspect]
     Route: 064
     Dates: start: 19991223
  2. HYDRALAZINE HCL [Concomitant]
     Route: 064
     Dates: start: 19991223
  3. MAGNESIUM SULFATE [Concomitant]
     Route: 064
     Dates: start: 19991223
  4. BETAMETHASONE [Concomitant]
     Route: 064
     Dates: start: 19991223, end: 19991224
  5. RANTIDINE [Concomitant]
     Route: 064
     Dates: start: 19991225, end: 19991225
  6. MAXOLON [Concomitant]
     Route: 064
     Dates: start: 19991225, end: 19991225
  7. ROPIVACAINE [Concomitant]
     Route: 064
     Dates: start: 19991225, end: 19991225
  8. MIDAZOLAM HCL [Concomitant]
     Route: 064
     Dates: start: 19991225, end: 19991225
  9. ARAMINE [Concomitant]
     Route: 064
     Dates: start: 19991225, end: 19991225
  10. BUPIVACAINE [Concomitant]
     Route: 064
     Dates: start: 19991225, end: 19991225
  11. GENTAMYCIN SULPHATE [Concomitant]
     Route: 064
     Dates: start: 19991225, end: 19991225
  12. SYNTOCINON [Concomitant]
     Route: 064
     Dates: start: 19991225, end: 19991225

REACTIONS (2)
  - DRUG EXPOSURE DURING PREGNANCY [None]
  - PREMATURE BABY [None]
